FAERS Safety Report 6227552-3 (Version None)
Quarter: 2009Q2

REPORT INFORMATION
  Report Type: 
  Country: None (occurrence: None)
  Receive Date: 20090612
  Receipt Date: 20090106
  Transmission Date: 20091009
  Serious: Yes (Hospitalization)
  Sender: FDA-Public Use
  Company Number: BR-PFIZER INC-2009152539

PATIENT

DRUGS (1)
  1. EPELIN [Suspect]
     Dosage: UNK
     Route: 048

REACTIONS (2)
  - ACCIDENT [None]
  - COMA [None]
